FAERS Safety Report 24990524 (Version 1)
Quarter: 2025Q1

REPORT INFORMATION
  Report Type: Report from Study
  Country: GB (occurrence: GB)
  Receive Date: 20250220
  Receipt Date: 20250220
  Transmission Date: 20250408
  Serious: Yes (Hospitalization)
  Sender: NOVARTIS
  Company Number: GB-002147023-NVSC2025GB028917

PATIENT
  Sex: Female

DRUGS (1)
  1. COSENTYX [Suspect]
     Active Substance: SECUKINUMAB
     Indication: Hidradenitis
     Route: 058
     Dates: start: 2024

REACTIONS (7)
  - Drug hypersensitivity [Unknown]
  - Mental disorder [Unknown]
  - Pain [Unknown]
  - Lip pain [Unknown]
  - Pyrexia [Unknown]
  - Taste disorder [Unknown]
  - Aphasia [Unknown]
